FAERS Safety Report 10233573 (Version 1)
Quarter: 2014Q2

REPORT INFORMATION
  Report Type: Report from Study
  Country: US (occurrence: US)
  Receive Date: 20140612
  Receipt Date: 20140612
  Transmission Date: 20141212
  Serious: Yes (Death)
  Sender: FDA-Public Use
  Company Number: US-BRISTOL-MYERS SQUIBB COMPANY-20952602

PATIENT
  Age: 80 Year
  Sex: Female

DRUGS (3)
  1. BELATACEPT [Suspect]
     Indication: RENAL TRANSPLANT
     Dosage: LAST DOSE:21-FEB-2014
     Dates: start: 20121228
  2. CELLCEPT [Suspect]
  3. PREDNISONE [Suspect]

REACTIONS (1)
  - Failure to thrive [Fatal]
